FAERS Safety Report 10737352 (Version 1)
Quarter: 2015Q1

REPORT INFORMATION
  Report Type: Spontaneous
  Country: US (occurrence: None)
  Receive Date: 20150122
  Receipt Date: 20150122
  Transmission Date: 20150721
  Serious: Yes (Disabling, Other)
  Sender: FDA-Public Use
  Company Number: None

PATIENT
  Age: 47 Year
  Sex: Female

DRUGS (1)
  1. HYDROCORTISONE 5MG QUALITEST [Suspect]
     Active Substance: HYDROCORTISONE
     Indication: ADDISON^S DISEASE
     Dosage: 1 PILL, FOUR TIMES DAILY, TAKEN BY MOUTH
     Route: 048
     Dates: start: 20140701, end: 20150120

REACTIONS (3)
  - Product substitution issue [None]
  - Laboratory test abnormal [None]
  - Malaise [None]

NARRATIVE: CASE EVENT DATE: 20150120
